FAERS Safety Report 7413128-9 (Version None)
Quarter: 2011Q2

REPORT INFORMATION
  Report Type: 
  Country: None (occurrence: None)
  Receive Date: 20110408
  Receipt Date: 20110408
  Transmission Date: 20111010
  Serious: Yes (Death)
  Sender: FDA-Public Use
  Company Number: None

PATIENT
  Sex: Male

DRUGS (1)
  1. TEMODAR [Suspect]
     Indication: BRAIN NEOPLASM
     Dosage: 400 MG QD X 5 DAYS PO
     Route: 048
     Dates: start: 20110210, end: 20110327

REACTIONS (1)
  - BRAIN NEOPLASM [None]
